FAERS Safety Report 7414251-5 (Version None)
Quarter: 2011Q1

REPORT INFORMATION
  Report Type: 
  Country: None (occurrence: None)
  Receive Date: 20110302
  Receipt Date: 20110112
  Transmission Date: 20110831
  Serious: No
  Sender: FDA-Public Use
  Company Number: 024621

PATIENT
  Sex: Female
  Weight: 73.5 kg

DRUGS (15)
  1. CIMZIA [Suspect]
     Indication: CROHN'S DISEASE
     Dosage: 200 MG ?X/2 WEEKS SUBCUTANEOUS
     Route: 058
     Dates: start: 20090625
  2. FOLIC ACID [Concomitant]
  3. ASACOL [Concomitant]
  4. CYCLOBENZAPRINE [Concomitant]
  5. PROCHLORPERAZINE TAB [Concomitant]
  6. ACETAMINOPHEN [Concomitant]
  7. FLUTICASONE PROPIONATE [Concomitant]
  8. HYDROCODONE [Concomitant]
  9. OMEPRAZOLE [Concomitant]
  10. PENICILLIN [Concomitant]
  11. HYDROCHLOROTHIAZIDE [Concomitant]
  12. AZATHIOPRINE [Concomitant]
  13. AMITRIPTYLINE HCL [Concomitant]
  14. IBUPROFEN [Concomitant]
  15. ALBUTEROL [Concomitant]

REACTIONS (4)
  - COUGH [None]
  - INJECTION SITE PAIN [None]
  - VOMITING [None]
  - DENTAL CARIES [None]
